FAERS Safety Report 24865187 (Version 1)
Quarter: 2025Q1

REPORT INFORMATION
  Report Type: Spontaneous
  Country: GB (occurrence: GB)
  Receive Date: 20250121
  Receipt Date: 20250121
  Transmission Date: 20250409
  Serious: Yes (Death, Other)
  Sender: HIKMA
  Company Number: GB-HIKMA PHARMACEUTICALS USA INC.-GB-H14001-24-12014

PATIENT
  Age: 25 Day
  Sex: Male
  Weight: 1 kg

DRUGS (7)
  1. PHENYTOIN [Suspect]
     Active Substance: PHENYTOIN
     Indication: Seizure
     Route: 065
     Dates: start: 20240819
  2. CAFFEINE [Concomitant]
     Active Substance: CAFFEINE
     Indication: Apnoea
     Route: 065
     Dates: start: 20240725
  3. FLUCLOXACILLIN [Concomitant]
     Active Substance: FLUCLOXACILLIN
     Indication: Infection
     Route: 065
     Dates: start: 20240817, end: 20240819
  4. FLUCONAZOLE [Concomitant]
     Active Substance: FLUCONAZOLE
     Indication: Antifungal prophylaxis
     Route: 065
     Dates: start: 20240817
  5. GENTAMICIN [Concomitant]
     Active Substance: GENTAMICIN
     Indication: Infection
     Route: 065
     Dates: start: 20240817, end: 20240819
  6. MEROPENEM [Concomitant]
     Active Substance: MEROPENEM
     Indication: Infection
     Route: 065
     Dates: start: 20240819
  7. MICONAZOLE [Concomitant]
     Active Substance: MICONAZOLE
     Indication: Dermatitis diaper
     Route: 065

REACTIONS (5)
  - Cardiac arrest [Fatal]
  - Neonatal hypoxia [Not Recovered/Not Resolved]
  - Bradycardia [Not Recovered/Not Resolved]
  - Pallor [Not Recovered/Not Resolved]
  - Circulatory collapse [Not Recovered/Not Resolved]

NARRATIVE: CASE EVENT DATE: 20240819
